FAERS Safety Report 13639334 (Version 1)
Quarter: 2017Q2

REPORT INFORMATION
  Report Type: Spontaneous
  Country: US (occurrence: US)
  Receive Date: 20170609
  Receipt Date: 20170609
  Transmission Date: 20170830
  Serious: No
  Sender: FDA-Public Use
  Company Number: US-ROCHE-707723

PATIENT
  Age: 42 Year
  Sex: Female

DRUGS (2)
  1. CLONAZEPAM. [Suspect]
     Active Substance: CLONAZEPAM
     Indication: POSTURAL ORTHOSTATIC TACHYCARDIA SYNDROME
     Dosage: DOSE: 0.5 MG; FREQUENCY: 3 TABLETS DAILY
     Route: 048
  2. WELLBUTRIN [Concomitant]
     Active Substance: BUPROPION HYDROCHLORIDE
     Route: 065

REACTIONS (4)
  - Fatigue [Unknown]
  - Eye pain [Unknown]
  - Somnolence [Unknown]
  - Migraine [Unknown]

NARRATIVE: CASE EVENT DATE: 2009
